FAERS Safety Report 12708333 (Version 3)
Quarter: 2017Q1

REPORT INFORMATION
  Report Type: Spontaneous
  Country: GB (occurrence: GB)
  Receive Date: 20160901
  Receipt Date: 20170217
  Transmission Date: 20170428
  Serious: Yes (Hospitalization, Other)
  Sender: FDA-Public Use
  Company Number: GB-FERRINGPH-2016FE00843

PATIENT

DRUGS (1)
  1. PROPESS [Suspect]
     Active Substance: DINOPROSTONE
     Indication: LABOUR INDUCTION
     Dosage: 10 MG SLOW RELEASE
     Route: 067
     Dates: start: 20160126

REACTIONS (4)
  - Uterine hyperstimulation [Unknown]
  - Postpartum haemorrhage [Unknown]
  - Hot flush [Unknown]
  - Uterine hypertonus [Unknown]

NARRATIVE: CASE EVENT DATE: 20160127
